FAERS Safety Report 17162074 (Version 1)
Quarter: 2019Q4

REPORT INFORMATION
  Report Type: Spontaneous
  Country: CN (occurrence: CN)
  Receive Date: 20191217
  Receipt Date: 20191217
  Transmission Date: 20200122
  Serious: Yes (Other)
  Sender: FDA-Public Use
  Company Number: CN-ROCHE-2497047

PATIENT
  Age: 78 Year
  Sex: Female

DRUGS (13)
  1. RECOMBINANT HUMAN GRANULOCYTE COLONY STIMULATING FACTOR [Suspect]
     Active Substance: GRANULOCYTE COLONY-STIMULATING FACTOR NOS
     Route: 058
     Dates: start: 20191127
  2. PIRARUBICIN [Suspect]
     Active Substance: PIRARUBICIN
     Indication: B-CELL LYMPHOMA
     Dosage: 1 CYCLE,DAY 2,3,4
     Route: 065
     Dates: start: 20191031
  3. PREDNISOLONE. [Suspect]
     Active Substance: PREDNISOLONE
     Dosage: 1 CYCLE,DAY 1-5
     Route: 065
     Dates: start: 20191121
  4. MABTHERA [Suspect]
     Active Substance: RITUXIMAB
     Dosage: 1 CYCLE,DAY 1
     Route: 065
     Dates: start: 20191121
  5. VINCRISTINE [Suspect]
     Active Substance: VINCRISTINE
     Dosage: 1 CYCLE,DAY 2
     Route: 065
     Dates: start: 20191121
  6. PIRARUBICIN [Suspect]
     Active Substance: PIRARUBICIN
     Dosage: 1 CYCLE,DAY 2,3,4
     Route: 065
     Dates: start: 20191121
  7. CYCLOPHOSPHAMIDE. [Suspect]
     Active Substance: CYCLOPHOSPHAMIDE
     Indication: B-CELL LYMPHOMA
     Dosage: 1 CYCLE,DAY 2 AND 4
     Route: 065
     Dates: start: 20191031
  8. PREDNISOLONE. [Suspect]
     Active Substance: PREDNISOLONE
     Indication: B-CELL LYMPHOMA
     Dosage: 1 CYCLE,DAY 1-5
     Route: 065
     Dates: start: 20191031
  9. MABTHERA [Suspect]
     Active Substance: RITUXIMAB
     Indication: B-CELL LYMPHOMA
     Dosage: 1 CYCLE,DAY 1
     Route: 065
     Dates: start: 20191031
  10. VINCRISTINE [Suspect]
     Active Substance: VINCRISTINE
     Indication: B-CELL LYMPHOMA
     Dosage: 1 CYCLE,DAY 2
     Route: 065
     Dates: start: 20191031
  11. CYCLOPHOSPHAMIDE. [Suspect]
     Active Substance: CYCLOPHOSPHAMIDE
     Dosage: 1 CYCLE,DAY 2 AND 4
     Route: 065
     Dates: start: 20191121
  12. RECOMBINANT HUMAN GRANULOCYTE COLONY STIMULATING FACTOR [Suspect]
     Active Substance: GRANULOCYTE COLONY-STIMULATING FACTOR NOS
     Indication: WHITE BLOOD CELL COUNT DECREASED
     Route: 065
  13. TELMISARTAN. [Concomitant]
     Active Substance: TELMISARTAN
     Indication: HYPERTENSION
     Route: 048
     Dates: start: 201912

REACTIONS (7)
  - Blood creatinine increased [Unknown]
  - Gastrointestinal disorder [Unknown]
  - White blood cell count decreased [Unknown]
  - Coronary artery disease [Unknown]
  - Anaemia [Unknown]
  - Bone marrow failure [Unknown]
  - Platelet count decreased [Unknown]
